FAERS Safety Report 14101341 (Version 2)
Quarter: 2017Q4

REPORT INFORMATION
  Report Type: Spontaneous
  Country: NL (occurrence: NL)
  Receive Date: 20171018
  Receipt Date: 20171031
  Transmission Date: 20180321
  Serious: Yes (Other)
  Sender: FDA-Public Use
  Company Number: NL-ROCHE-2010265

PATIENT
  Age: 58 Year
  Sex: Female

DRUGS (3)
  1. HERCEPTIN [Suspect]
     Active Substance: TRASTUZUMAB
     Indication: PRODUCT USED FOR UNKNOWN INDICATION
     Route: 065
  2. DOXYCYCLINE. [Suspect]
     Active Substance: DOXYCYCLINE
     Indication: PRODUCT USED FOR UNKNOWN INDICATION
     Route: 065
  3. KADCYLA [Suspect]
     Active Substance: ADO-TRASTUZUMAB EMTANSINE
     Indication: PRODUCT USED FOR UNKNOWN INDICATION
     Route: 042
     Dates: start: 20171013

REACTIONS (8)
  - Chest discomfort [Unknown]
  - Cough [Unknown]
  - Anaphylactic shock [Recovered/Resolved]
  - Nausea [Unknown]
  - Muscle spasms [Unknown]
  - Headache [Unknown]
  - Pain [Unknown]
  - Myalgia [Unknown]

NARRATIVE: CASE EVENT DATE: 20171013
